FAERS Safety Report 6292448-8 (Version None)
Quarter: 2009Q3

REPORT INFORMATION
  Report Type: 
  Country: None (occurrence: None)
  Receive Date: 20090731
  Receipt Date: 20090708
  Transmission Date: 20100115
  Serious: Yes (Hospitalization)
  Sender: FDA-Public Use
  Company Number: IE-NOVOPROD-287514

PATIENT
  Age: 34 Year
  Sex: Female

DRUGS (3)
  1. LEVEMIR [Suspect]
     Indication: GESTATIONAL DIABETES
     Dosage: 18 U, QD
     Route: 058
     Dates: start: 20090323
  2. NOVOLOG [Suspect]
     Indication: GESTATIONAL DIABETES
     Dosage: 25 U, (8+5+12) QD
     Route: 058
     Dates: start: 20090323
  3. FERROGRAD                          /00023503/ [Concomitant]
     Indication: MINERAL SUPPLEMENTATION
     Dosage: 1 TAB, QD
     Route: 048

REACTIONS (4)
  - DRUG EXPOSURE DURING PREGNANCY [None]
  - INJECTION SITE ERYTHEMA [None]
  - INJECTION SITE PAIN [None]
  - INJECTION SITE PRURITUS [None]
